FAERS Safety Report 6498040-4 (Version None)
Quarter: 2009Q4

REPORT INFORMATION
  Report Type: 
  Country: None (occurrence: None)
  Receive Date: 20091215
  Receipt Date: 20091210
  Transmission Date: 20100525
  Serious: Yes (Death, Hospitalization)
  Sender: FDA-Public Use
  Company Number: PHHY2009JP54363

PATIENT

DRUGS (1)
  1. TASIGNA [Suspect]
     Route: 048

REACTIONS (2)
  - PNEUMONIA [None]
  - REFUSAL OF TREATMENT BY PATIENT [None]
